FAERS Safety Report 19118884 (Version 1)
Quarter: 2021Q2

REPORT INFORMATION
  Report Type: Spontaneous
  Country: VN (occurrence: VN)
  Receive Date: 20210410
  Receipt Date: 20210410
  Transmission Date: 20210717
  Serious: Yes (Other)
  Sender: FDA-Public Use
  Company Number: NVSC2021VN077861

PATIENT
  Age: 77 Year
  Sex: Female

DRUGS (1)
  1. ACLASTA [Suspect]
     Active Substance: ZOLEDRONIC ACID
     Indication: OSTEOPOROSIS
     Dosage: 1 DF, UNKNOWN
     Route: 041
     Dates: start: 20210401

REACTIONS (4)
  - Pain [Unknown]
  - Atrial fibrillation [Unknown]
  - Electrolyte imbalance [Unknown]
  - Diarrhoea infectious [Unknown]

NARRATIVE: CASE EVENT DATE: 20210402
